FAERS Safety Report 21170769 (Version 1)
Quarter: 2022Q3

REPORT INFORMATION
  Report Type: Spontaneous
  Country: DE (occurrence: None)
  Receive Date: 20220804
  Receipt Date: 20220804
  Transmission Date: 20221027
  Serious: Yes (Other)
  Sender: FDA-Public Use
  Company Number: 2022A271059

PATIENT
  Sex: Male

DRUGS (1)
  1. FASENRA [Suspect]
     Active Substance: BENRALIZUMAB
     Indication: Asthma
     Dosage: EVERY 6 WEEKS UNKNOWN
     Route: 058
     Dates: start: 2018

REACTIONS (5)
  - Asthma [Unknown]
  - Dyspnoea [Unknown]
  - Condition aggravated [Unknown]
  - Off label use [Unknown]
  - Therapeutic product effect decreased [Unknown]
